FAERS Safety Report 10993681 (Version 1)
Quarter: 2015Q2

REPORT INFORMATION
  Report Type: Spontaneous
  Country: RO (occurrence: None)
  Receive Date: 20150403
  Receipt Date: 20150403
  Transmission Date: 20150821
  Serious: Yes (Hospitalization)
  Sender: FDA-Public Use
  Company Number: RO-2015VAL000228

PATIENT
  Age: 48 Year
  Sex: Female

DRUGS (1)
  1. CARBAMAZEPINE (CARBAMAZEPINE) UKNOWN, 200MG [Suspect]
     Active Substance: CARBAMAZEPINE
     Indication: PRODUCT USED FOR UNKNOWN INDICATION
     Dosage: SINGLE

REACTIONS (11)
  - Polyuria [None]
  - Toxicity to various agents [None]
  - Ammonia increased [None]
  - Hyperammonaemia [None]
  - Agitation [None]
  - Intentional overdose [None]
  - Suicide attempt [None]
  - Neurotoxicity [None]
  - Blood creatine phosphokinase increased [None]
  - Coma [None]
  - Toxic encephalopathy [None]
